FAERS Safety Report 20612417 (Version 1)
Quarter: 2022Q1

REPORT INFORMATION
  Report Type: Spontaneous
  Country: US (occurrence: None)
  Receive Date: 20220318
  Receipt Date: 20220318
  Transmission Date: 20220423
  Serious: Yes (Hospitalization)
  Sender: FDA-Public Use
  Company Number: None

PATIENT
  Sex: Female

DRUGS (1)
  1. SILDENAFIL CITRATE [Suspect]
     Active Substance: SILDENAFIL CITRATE
     Indication: Pulmonary arterial hypertension
     Dosage: 20MG TID ORAL?
     Route: 048
     Dates: start: 202110

REACTIONS (4)
  - Dyspnoea [None]
  - Cough [None]
  - Wheezing [None]
  - Condition aggravated [None]

NARRATIVE: CASE EVENT DATE: 20220301
